FAERS Safety Report 5613637-9 (Version None)
Quarter: 2008Q1

REPORT INFORMATION
  Report Type: 
  Country: None (occurrence: None)
  Receive Date: 20080129
  Receipt Date: 20080116
  Transmission Date: 20080703
  Serious: Yes (Death, Life-Threatening, Hospitalization, Other)
  Sender: FDA-Public Use
  Company Number: 44446

PATIENT
  Age: 5 Year
  Sex: Male

DRUGS (1)
  1. CYCLOSPORINE [Suspect]
     Indication: RENAL TRANSPLANT
     Dosage: 7MG/KG/DAY

REACTIONS (11)
  - BRAIN MASS [None]
  - COMA [None]
  - CONVULSION [None]
  - EPSTEIN-BARR VIRUS INFECTION [None]
  - HEADACHE [None]
  - HEPATOSPLENOMEGALY [None]
  - LEUKOPENIA [None]
  - LUNG NEOPLASM [None]
  - LYMPHADENOPATHY [None]
  - SMOOTH MUSCLE CELL NEOPLASM [None]
  - VITH NERVE PARALYSIS [None]
